FAERS Safety Report 5137103-2 (Version None)
Quarter: 2006Q4

REPORT INFORMATION
  Report Type: 
  Country: None (occurrence: None)
  Receive Date: 20061030
  Receipt Date: 20060925
  Transmission Date: 20070319
  Serious: No
  Sender: FDA-Public Use
  Company Number: US-AMGEN-KDL194604

PATIENT
  Sex: Female

DRUGS (2)
  1. KEPIVANCE [Suspect]
     Indication: STOMATITIS
     Dates: start: 20060901
  2. MELPHALAN [Concomitant]

REACTIONS (1)
  - RASH [None]
